FAERS Safety Report 9937612 (Version 2)
Quarter: 2014Q1

REPORT INFORMATION
  Report Type: Report from Study
  Country: US (occurrence: US)
  Receive Date: 20140303
  Receipt Date: 20140303
  Transmission Date: 20141002
  Serious: Yes (Other)
  Sender: FDA-Public Use
  Company Number: US-ROCHE-1304579

PATIENT
  Sex: Male

DRUGS (5)
  1. XELODA [Suspect]
     Indication: PRODUCT USED FOR UNKNOWN INDICATION
     Route: 048
  2. NASONEX [Concomitant]
     Dosage: 2 SPRAYS EACH NOSTRIL QD
     Route: 045
  3. PROMETHAZINE [Concomitant]
     Dosage: PRN
     Route: 048
  4. AMITRIPTYLINE [Concomitant]
     Dosage: AT BEDTIME
     Route: 048
  5. HYDROCODONE/ACETAMINOPHEN [Concomitant]
     Dosage: 7.5/500 MG
     Route: 048

REACTIONS (29)
  - Abdominal pain upper [Unknown]
  - Renal cancer [Unknown]
  - Hepatic lesion [Unknown]
  - Weight decreased [Unknown]
  - Skin tightness [Unknown]
  - Diplopia [Unknown]
  - Insomnia [Unknown]
  - Neuropathy peripheral [Unknown]
  - Ear infection [Unknown]
  - Acute sinusitis [Unknown]
  - Blood pressure increased [Unknown]
  - Ear infection [Unknown]
  - Ear pain [Unknown]
  - Paralysis [Unknown]
  - Salivary gland neoplasm [Unknown]
  - Parotid gland enlargement [Unknown]
  - Tenderness [Unknown]
  - Pharyngitis [Unknown]
  - Flushing [Unknown]
  - Oropharyngeal pain [Unknown]
  - Tympanic membrane perforation [Unknown]
  - Eyelid ptosis [Unknown]
  - Scar [Unknown]
  - VIIth nerve paralysis [Unknown]
  - Dry skin [Unknown]
  - Lung neoplasm [Unknown]
  - Salivary gland calculus [Unknown]
  - Pain in jaw [Unknown]
  - Facial pain [Unknown]
